FAERS Safety Report 7371330-9 (Version None)
Quarter: 2011Q1

REPORT INFORMATION
  Report Type: 
  Country: None (occurrence: None)
  Receive Date: 20110324
  Receipt Date: 20101015
  Transmission Date: 20110831
  Serious: Yes (Hospitalization, Other)
  Sender: FDA-Public Use
  Company Number: US-BAYER-200940991NA

PATIENT
  Sex: Female
  Weight: 83.9 kg

DRUGS (4)
  1. PROMETHAZINE [Concomitant]
  2. UNCODEABLE ^UNCLASSIFIABLE^ [Concomitant]
  3. OXYCODONE [Concomitant]
  4. YASMIN [Suspect]
     Indication: CONTRACEPTION
     Dosage: UNK
     Dates: start: 20040301, end: 20060601

REACTIONS (5)
  - CHOLECYSTITIS CHRONIC [None]
  - BILE DUCT STONE [None]
  - CHOLELITHIASIS [None]
  - PAIN [None]
  - CHOLECYSTECTOMY [None]
